FAERS Safety Report 4653244-8 (Version None)
Quarter: 2005Q2

REPORT INFORMATION
  Report Type: 
  Country: None (occurrence: None)
  Receive Date: 20050503
  Receipt Date: 20050503
  Transmission Date: 20051028
  Serious: Yes (Other)
  Sender: FDA-Public Use
  Company Number: None

PATIENT
  Age: 54 Year
  Sex: Female
  Weight: 50.3493 kg

DRUGS (4)
  1. HYDROXYCHLOROQUINE SULFATE [Suspect]
     Indication: RHEUMATOID ARTHRITIS
     Dosage: 400MG PO QD
     Route: 048
     Dates: start: 20050101
  2. ARAVA [Concomitant]
  3. METHOTREXATE [Concomitant]
  4. FOLATE [Concomitant]

REACTIONS (2)
  - NAUSEA [None]
  - VOMITING [None]
